FAERS Safety Report 22705325 (Version 3)
Quarter: 2023Q4

REPORT INFORMATION
  Report Type: Report from Study
  Country: CA (occurrence: CA)
  Receive Date: 20230714
  Receipt Date: 20231123
  Transmission Date: 20240110
  Serious: Yes (Hospitalization)
  Sender: FDA-Public Use
  Company Number: CA-ASTELLAS-2023US020601

PATIENT
  Age: 75 Year
  Sex: Male

DRUGS (11)
  1. ENZALUTAMIDE [Suspect]
     Active Substance: ENZALUTAMIDE
     Indication: Prostate cancer metastatic
     Dosage: 80 MG, UNKNOWN FREQ. (80 MG DAILY DOSE)
     Route: 048
     Dates: start: 20170105
  2. GOSERELIN [Suspect]
     Active Substance: GOSERELIN
     Indication: Prostate cancer metastatic
     Route: 058
     Dates: start: 20170109
  3. CALCIUM CARBONATE [Concomitant]
     Active Substance: CALCIUM CARBONATE
     Indication: Supplementation therapy
     Route: 048
     Dates: start: 20170105
  4. VITAMIN D [Concomitant]
     Active Substance: VITAMIN D NOS
     Indication: Supplementation therapy
     Route: 048
     Dates: start: 20170117, end: 20230630
  5. VENLAFAXINE HYDROCHLORIDE [Concomitant]
     Active Substance: VENLAFAXINE HYDROCHLORIDE
     Indication: Adverse event
     Route: 048
     Dates: start: 20170315
  6. PANTOPRAZOLE [Concomitant]
     Active Substance: PANTOPRAZOLE
     Indication: Adverse event
     Route: 048
     Dates: start: 20190107
  7. METAMUCIL [Concomitant]
     Active Substance: PLANTAGO SEED
     Indication: Adverse event
     Dosage: 1 CAPFUL, ONCE DAILY
     Route: 048
     Dates: start: 20190426, end: 20230630
  8. CALCIUM\CHOLECALCIFEROL [Concomitant]
     Active Substance: CALCIUM\CHOLECALCIFEROL
     Indication: Supplementation therapy
     Dosage: 650 MG+400 IU, ONCE DAILY
     Route: 048
     Dates: start: 20200701, end: 20230630
  9. CALCIUM\CHOLECALCIFEROL [Concomitant]
     Active Substance: CALCIUM\CHOLECALCIFEROL
     Dosage: UNK UNK, ONCE DAILY
     Route: 048
  10. VITAMIN E [Concomitant]
     Active Substance: .ALPHA.-TOCOPHEROL
     Indication: Supplementation therapy
     Route: 048
     Dates: start: 20200701, end: 20230630
  11. JUBLIA [Concomitant]
     Active Substance: EFINACONAZOLE
     Indication: Adverse event
     Route: 061
     Dates: start: 20220823, end: 20230630

REACTIONS (1)
  - Atrioventricular block complete [Recovered/Resolved]

NARRATIVE: CASE EVENT DATE: 20230630
